FAERS Safety Report 16990410 (Version 1)
Quarter: 2019Q4

REPORT INFORMATION
  Report Type: Spontaneous
  Country: US (occurrence: US)
  Receive Date: 20191103
  Receipt Date: 20191103
  Transmission Date: 20200122
  Serious: No
  Sender: FDA-Public Use
  Company Number: None

PATIENT
  Age: 60 Year
  Sex: Female
  Weight: 54 kg

DRUGS (3)
  1. PROGESTERONE 100MG CAPSULES [Suspect]
     Active Substance: PROGESTERONE
     Indication: POSTMENOPAUSE
     Dosage: ?          QUANTITY:1 CAPSULE(S);?
     Route: 048
     Dates: start: 20191001, end: 20191015
  2. PROGESTERONE 100MG CAPSULES [Suspect]
     Active Substance: PROGESTERONE
     Indication: HORMONE REPLACEMENT THERAPY
     Dosage: ?          QUANTITY:1 CAPSULE(S);?
     Route: 048
     Dates: start: 20191001, end: 20191015
  3. ESTRIDIOL PATCH [Concomitant]

REACTIONS (4)
  - Malaise [None]
  - Product odour abnormal [None]
  - Headache [None]
  - Fatigue [None]

NARRATIVE: CASE EVENT DATE: 20191001
